FAERS Safety Report 15021771 (Version 1)
Quarter: 2018Q2

REPORT INFORMATION
  Report Type: Spontaneous
  Country: US (occurrence: US)
  Receive Date: 20180618
  Receipt Date: 20180618
  Transmission Date: 20180711
  Serious: No
  Sender: FDA-Public Use
  Company Number: US-GLAXOSMITHKLINE-US2018104832

PATIENT
  Sex: Female

DRUGS (3)
  1. ABREVA [Suspect]
     Active Substance: DOCOSANOL
     Indication: ECZEMA
     Dosage: UNK
  2. ABREVA [Suspect]
     Active Substance: DOCOSANOL
     Indication: LIP DRY
  3. ABREVA [Suspect]
     Active Substance: DOCOSANOL
     Indication: SKIN EXFOLIATION

REACTIONS (2)
  - Product use in unapproved indication [Unknown]
  - Drug effective for unapproved indication [Unknown]
